FAERS Safety Report 10165932 (Version 1)
Quarter: 2014Q2

REPORT INFORMATION
  Report Type: Spontaneous
  Country: US (occurrence: US)
  Receive Date: 20140510
  Receipt Date: 20140510
  Transmission Date: 20141212
  Serious: No
  Sender: FDA-Public Use
  Company Number: US-TEVA-481010USA

PATIENT
  Sex: Female

DRUGS (5)
  1. PLAN B ONE-STEP [Suspect]
     Indication: POST COITAL CONTRACEPTION
     Dosage: 1.5 MILLIGRAM DAILY;
     Route: 048
     Dates: start: 201404, end: 201404
  2. PLAN B ONE-STEP [Suspect]
     Dosage: 1.5 MILLIGRAM DAILY;
     Route: 048
     Dates: start: 201404, end: 201404
  3. PLAN B ONE-STEP [Suspect]
     Dosage: 1.5 MILLIGRAM DAILY;
     Route: 048
     Dates: start: 20140418, end: 20140418
  4. PLAN B ONE-STEP [Suspect]
     Dosage: 1.5 MILLIGRAM DAILY;
     Route: 048
     Dates: start: 20140421, end: 20140421
  5. CONTRACEPTIVES NOS [Concomitant]
     Indication: CONTRACEPTION

REACTIONS (1)
  - Menstruation irregular [Unknown]
